FAERS Safety Report 4673171-X (Version None)
Quarter: 2005Q2

REPORT INFORMATION
  Report Type: 
  Country: None (occurrence: None)
  Receive Date: 20050523
  Receipt Date: 20050523
  Transmission Date: 20051028
  Serious: Yes (Other)
  Sender: FDA-Public Use
  Company Number: None

PATIENT
  Age: 61 Year
  Sex: Male
  Weight: 126.1 kg

DRUGS (7)
  1. AMOXICILLIN AND CLAVULANATE POTASSIUM [Suspect]
  2. FLUOCINONIDE [Concomitant]
  3. HYDROXYZINE PAMOATE [Concomitant]
  4. IPRATROPIUM BROMIDE [Concomitant]
  5. SERTRALINE HCL [Concomitant]
  6. AMOXICILLIN 875/CLAV K [Concomitant]
  7. COLESTIPOL HCL [Concomitant]

REACTIONS (1)
  - RASH [None]
